FAERS Safety Report 4976332-5 (Version None)
Quarter: 2006Q2

REPORT INFORMATION
  Report Type: 
  Country: None (occurrence: None)
  Receive Date: 20060412
  Receipt Date: 20060331
  Transmission Date: 20061013
  Serious: Yes (Hospitalization)
  Sender: FDA-Public Use
  Company Number: 2006044289

PATIENT
  Age: 52 Year
  Sex: Male

DRUGS (5)
  1. ASPIRIN [Suspect]
     Indication: ARTERIOSCLEROSIS
     Dosage: 75MG DAILY, ORAL
     Route: 048
  2. FRAGMIN [Suspect]
  3. CLOPIDOGREL BISULFATE [Suspect]
     Indication: ARTERIOSCLEROSIS
     Dosage: 75MG DAILY, ORAL
     Route: 048
  4. SIMVASTATIN [Suspect]
  5. TIROFIBAN HYDROCHLORIDE                (TIROFIBAN HYDROCHLORIDE) [Suspect]
     Dosage: 0.25 MG/ML DOSE, INTRAVENOUS
     Route: 042
     Dates: start: 20060123, end: 20060123

REACTIONS (8)
  - CHEST PAIN [None]
  - CHILLS [None]
  - CORONARY ARTERIAL STENT INSERTION [None]
  - HAEMATEMESIS [None]
  - LABORATORY TEST ABNORMAL [None]
  - PYREXIA [None]
  - SURGICAL PROCEDURE REPEATED [None]
  - VOMITING [None]
